FAERS Safety Report 8771723 (Version 2)
Quarter: 2013Q1

REPORT INFORMATION
  Report Type: Spontaneous
  Country: US (occurrence: US)
  Receive Date: 20120830
  Receipt Date: 20130322
  Transmission Date: 20140127
  Serious: Yes (Hospitalization, Other)
  Sender: FDA-Public Use
  Company Number: US-ELI_LILLY_AND_COMPANY-US201205005091

PATIENT
  Age: 66 None
  Sex: Female

DRUGS (16)
  1. FORTEO [Suspect]
     Indication: OSTEOPOROSIS
     Dosage: 20 UG, QD
     Route: 065
     Dates: start: 201204
  2. FORTEO [Suspect]
     Dosage: 20 UG, QD
     Route: 065
  3. FORTEO [Suspect]
     Dosage: 20 UG, QD
     Route: 065
  4. FORTEO [Suspect]
     Dosage: 20 UG, QD
  5. CYMBALTA [Concomitant]
     Dosage: 60 MG, QD
  6. BABY ASPIRIN [Concomitant]
     Dosage: UNK
  7. BYSTOLIC [Concomitant]
     Dosage: UNK UNK, QD
  8. LISINOPRIL [Concomitant]
     Dosage: 20 MG, BID
  9. NORVASC [Concomitant]
     Dosage: 5 MG, QD
  10. VIMOVO [Concomitant]
     Dosage: UNK
  11. VICODIN [Concomitant]
     Dosage: 500 MG, BID
  12. MIRAPEX [Concomitant]
     Dosage: 0.5 MG, QD
  13. B12 [Concomitant]
     Dosage: UNK, WEEKLY (1/W)
  14. SINGULAIR [Concomitant]
     Dosage: 10 MG, QD
  15. LESCOL [Concomitant]
     Dosage: UNK, QD
  16. ASPIRIN [Concomitant]
     Dosage: UNK, QD

REACTIONS (3)
  - Cerebrovascular accident [Unknown]
  - Carotid artery occlusion [Unknown]
  - Headache [Unknown]
